FAERS Safety Report 22115631 (Version 1)
Quarter: 2023Q1

REPORT INFORMATION
  Report Type: Report from Study
  Country: NL (occurrence: NL)
  Receive Date: 20230320
  Receipt Date: 20230320
  Transmission Date: 20230417
  Serious: Yes (Other)
  Sender: FDA-Public Use
  Company Number: NL-VER-202100163

PATIENT
  Age: 84 Year
  Sex: Male

DRUGS (1)
  1. TRIPTORELIN PAMOATE [Suspect]
     Active Substance: TRIPTORELIN PAMOATE
     Indication: Prostate cancer
     Dosage: OTHER BATCH NUMBER USED WAS U13453 AND EXPIRY DATE WAS AUG-2023. ADDITIONAL BATCH/LOT NUMBER WAS W12
     Route: 030
     Dates: start: 20210517

REACTIONS (2)
  - Injection site discomfort [Recovered/Resolved]
  - Terminal state [Unknown]

NARRATIVE: CASE EVENT DATE: 20210517
